FAERS Safety Report 8517189-5 (Version None)
Quarter: 2012Q3

REPORT INFORMATION
  Report Type: 
  Country: None (occurrence: None)
  Receive Date: 20120718
  Receipt Date: 20120711
  Transmission Date: 20120928
  Serious: Yes (Other)
  Sender: FDA-Public Use
  Company Number: US-JNJFOC-20060906252

PATIENT
  Sex: Female

DRUGS (2)
  1. RISPERDAL [Suspect]
     Indication: DEPRESSION
     Dosage: 1-3 MG
     Dates: start: 19980101, end: 20090101
  2. RISPERDAL [Suspect]
     Indication: SCHIZOPHRENIA
     Dosage: 1-3 MG
     Dates: start: 19980101, end: 20090101

REACTIONS (1)
  - DIABETES MELLITUS [None]
